FAERS Safety Report 5881283-8 (Version None)
Quarter: 2008Q3

REPORT INFORMATION
  Report Type: 
  Country: None (occurrence: None)
  Receive Date: 20080911
  Receipt Date: 20080902
  Transmission Date: 20090109
  Serious: Yes (Other)
  Sender: FDA-Public Use
  Company Number: 08-001423

PATIENT
  Age: 68 Year
  Sex: Male

DRUGS (3)
  1. DORYX [Suspect]
     Indication: EPIDIDYMITIS
     Dosage: 100 MG, QD, ORAL
     Route: 048
     Dates: start: 20080829
  2. CELEBREX [Concomitant]
  3. FLOMAX /00889901/(MORNIFLUMATE) [Concomitant]

REACTIONS (2)
  - HAEMATOCHEZIA [None]
  - RECTAL DISCHARGE [None]
